APPROVED DRUG PRODUCT: CUBICIN RF
Active Ingredient: DAPTOMYCIN
Strength: 500MG/VIAL **Federal Register determination that product was not discontinued or withdrawn for safety or effectiveness reasons**
Dosage Form/Route: POWDER;INTRAVENOUS
Application: N021572 | Product #003
Applicant: CUBIST PHARMACEUTICALS LLC
Approved: Jul 6, 2016 | RLD: Yes | RS: No | Type: DISCN

PATENTS:
Patent 9138456 | Expires: Nov 23, 2030